FAERS Safety Report 8916714 (Version 1)
Quarter: 2012Q4

REPORT INFORMATION
  Report Type: Report from Study
  Country: US (occurrence: US)
  Receive Date: 20121120
  Receipt Date: 20121120
  Transmission Date: 20130627
  Serious: Yes (Hospitalization)
  Sender: FDA-Public Use
  Company Number: US-ROCHE-1157300

PATIENT
  Age: 37 Year
  Sex: Male
  Weight: 99.88 kg

DRUGS (2)
  1. BEVACIZUMAB [Suspect]
     Indication: GLIOBLASTOMA
     Route: 042
     Dates: start: 201202
  2. TEMODAR [Concomitant]
     Indication: GLIOBLASTOMA
     Route: 048

REACTIONS (3)
  - Hypoaesthesia [Recovering/Resolving]
  - Dry mouth [Unknown]
  - Dysarthria [Recovering/Resolving]
